FAERS Safety Report 5491392-3 (Version None)
Quarter: 2007Q4

REPORT INFORMATION
  Report Type: 
  Country: None (occurrence: None)
  Receive Date: 20071018
  Receipt Date: 20071008
  Transmission Date: 20080405
  Serious: Yes (Other)
  Sender: FDA-Public Use
  Company Number: GXKR2007GB08331

PATIENT
  Age: 45 Year
  Sex: Female

DRUGS (2)
  1. TRIMETHOPRIM [Suspect]
     Indication: URINARY TRACT INFECTION
  2. FOLIC ACID [Concomitant]

REACTIONS (5)
  - ABDOMINAL PAIN [None]
  - ABORTION SPONTANEOUS [None]
  - DRUG EXPOSURE DURING PREGNANCY [None]
  - METRORRHAGIA [None]
  - RASH [None]
